FAERS Safety Report 4440687-0 (Version None)
Quarter: 2004Q3

REPORT INFORMATION
  Report Type: 
  Country: None (occurrence: None)
  Receive Date: 20040903
  Receipt Date: 20040825
  Transmission Date: 20050211
  Serious: Yes (Hospitalization)
  Sender: FDA-Public Use
  Company Number: US-JNJFOC-20040405699

PATIENT
  Sex: Female
  Weight: 47.63 kg

DRUGS (14)
  1. DURAGESIC [Suspect]
     Route: 062
  2. DURAGESIC [Suspect]
     Route: 062
  3. DURAGESIC [Suspect]
     Route: 062
  4. DURAGESIC [Suspect]
     Route: 062
  5. AMBIEN [Concomitant]
     Dosage: AT BEDTIME
     Route: 049
  6. DILAUDID [Concomitant]
  7. DICLOFENAC SODIUM [Concomitant]
  8. SYNTHROID [Concomitant]
  9. TRAZODONE [Concomitant]
     Dosage: AT BEDTIME
  10. TRAZODONE [Concomitant]
     Indication: SLEEP DISORDER THERAPY
     Dosage: AT BEDTIME
  11. PREDNISONE [Concomitant]
     Dosage: TWO 20 MG TABLETS
     Route: 049
  12. NEURONTIN [Concomitant]
     Route: 049
  13. LIDODERM [Concomitant]
  14. BEXTRA [Concomitant]

REACTIONS (12)
  - AGITATION [None]
  - ANXIETY [None]
  - ASTHENIA [None]
  - CONSTIPATION [None]
  - DEPRESSION [None]
  - DISORIENTATION [None]
  - DIZZINESS [None]
  - HAEMARTHROSIS [None]
  - INSOMNIA [None]
  - NAUSEA [None]
  - PERIARTHRITIS [None]
  - PYREXIA [None]
